FAERS Safety Report 13971651 (Version 1)
Quarter: 2017Q3

REPORT INFORMATION
  Report Type: Spontaneous
  Country: US (occurrence: US)
  Receive Date: 20170914
  Receipt Date: 20170914
  Transmission Date: 20171128
  Serious: No
  Sender: FDA-Public Use
  Company Number: US-ASTELLAS-2017US030642

PATIENT
  Sex: Male

DRUGS (1)
  1. XTANDI [Suspect]
     Active Substance: ENZALUTAMIDE
     Indication: PROSTATE CANCER
     Route: 048

REACTIONS (8)
  - Hyperhidrosis [Unknown]
  - Vision blurred [Unknown]
  - Pain [Unknown]
  - Hot flush [Unknown]
  - Rhinorrhoea [Unknown]
  - Myalgia [Unknown]
  - Feeling abnormal [Unknown]
  - Lacrimation increased [Unknown]
